FAERS Safety Report 11427827 (Version 1)
Quarter: 2015Q3

REPORT INFORMATION
  Report Type: Spontaneous
  Country: DE (occurrence: DE)
  Receive Date: 20150828
  Receipt Date: 20150828
  Transmission Date: 20151125
  Serious: Yes (Hospitalization)
  Sender: FDA-Public Use
  Company Number: DE-ASTRAZENECA-2015SE80470

PATIENT
  Age: 85 Year
  Sex: Female

DRUGS (1)
  1. MERONEM [Suspect]
     Active Substance: MEROPENEM
     Indication: INFECTION
     Route: 042

REACTIONS (5)
  - Diarrhoea [Unknown]
  - Anaemia [Unknown]
  - Hyperhidrosis [Unknown]
  - Atrial fibrillation [Unknown]
  - Nausea [Unknown]
